FAERS Safety Report 13619366 (Version 1)
Quarter: 2017Q2

REPORT INFORMATION
  Report Type: Spontaneous
  Country: US (occurrence: US)
  Receive Date: 20170606
  Receipt Date: 20170606
  Transmission Date: 20170830
  Serious: No
  Sender: FDA-Public Use
  Company Number: US-AMGEN-USASP2016157454

PATIENT
  Age: 83 Year
  Sex: Male
  Weight: 65.3 kg

DRUGS (1)
  1. PROCRIT [Suspect]
     Active Substance: ERYTHROPOIETIN
     Indication: PRODUCT USED FOR UNKNOWN INDICATION
     Dosage: UNK
     Route: 058
     Dates: start: 2012

REACTIONS (6)
  - Unevaluable event [Unknown]
  - Haemoglobin abnormal [Unknown]
  - Iron deficiency [Unknown]
  - Drug ineffective [Unknown]
  - Folate deficiency [Unknown]
  - Glucose-6-phosphate dehydrogenase deficiency [Unknown]

NARRATIVE: CASE EVENT DATE: 2016
